FAERS Safety Report 4867111-8 (Version None)
Quarter: 2005Q4

REPORT INFORMATION
  Report Type: 
  Country: None (occurrence: None)
  Receive Date: 20051222
  Receipt Date: 20051209
  Transmission Date: 20060501
  Serious: Yes (Death)
  Sender: FDA-Public Use
  Company Number: US200512001770

PATIENT
  Age: 48 Year
  Sex: Female

DRUGS (1)
  1. ZYPREXA [Suspect]
     Indication: DEPRESSION
     Dates: start: 20010419, end: 20031207

REACTIONS (1)
  - DIABETES MELLITUS [None]
